FAERS Safety Report 7984714-2 (Version None)
Quarter: 2011Q4

REPORT INFORMATION
  Report Type: 
  Country: None (occurrence: None)
  Receive Date: 20111216
  Receipt Date: 20111209
  Transmission Date: 20120403
  Serious: Yes (Hospitalization)
  Sender: FDA-Public Use
  Company Number: US-JNJFOC-20111205356

PATIENT
  Sex: Male
  Weight: 136.08 kg

DRUGS (23)
  1. FENTANYL-100 [Suspect]
     Indication: PAIN
     Route: 062
  2. TRICOR [Concomitant]
     Indication: BLOOD CHOLESTEROL
     Route: 048
     Dates: start: 20090101
  3. AVODART [Concomitant]
     Indication: DYSURIA
     Route: 048
     Dates: start: 20080101
  4. GLIPIZIDE [Concomitant]
     Indication: DIABETES MELLITUS
     Route: 048
     Dates: start: 20020101
  5. METFORMIN HCL [Concomitant]
     Indication: DIABETES MELLITUS
     Route: 048
     Dates: start: 20000101
  6. LYRICA [Concomitant]
     Indication: NERVE INJURY
     Route: 048
     Dates: start: 20100101
  7. LOPRESSOR [Concomitant]
     Indication: HYPERTENSION
     Route: 048
     Dates: start: 20080101
  8. OXYCONTIN [Concomitant]
     Indication: PAIN
     Route: 048
     Dates: start: 20100101
  9. AVODART [Concomitant]
     Indication: PROSTATIC DISORDER
     Route: 048
     Dates: start: 20080101
  10. CYMBALTA [Concomitant]
     Indication: DEPRESSION
     Route: 048
     Dates: start: 20060101
  11. FENTANYL-100 [Suspect]
     Route: 062
     Dates: start: 20110801
  12. ZOCOR [Concomitant]
     Indication: BLOOD CHOLESTEROL
     Route: 048
     Dates: start: 20100101
  13. ZESTRIL [Concomitant]
     Indication: HYPERTENSION
     Route: 048
     Dates: start: 20080101
  14. CELEBREX [Concomitant]
     Indication: ARTHRALGIA
     Route: 048
     Dates: start: 20090101
  15. FENTANYL-100 [Suspect]
     Route: 062
  16. FUROSEMIDE [Concomitant]
     Indication: SWELLING
     Route: 048
     Dates: start: 20111001
  17. METOLAZONE [Concomitant]
     Indication: SWELLING
     Route: 048
     Dates: start: 20111001
  18. FENTANYL-100 [Suspect]
     Route: 062
     Dates: start: 20100101
  19. NEXIUM [Concomitant]
     Indication: GASTRIC ULCER
     Route: 048
     Dates: start: 20080101
  20. FLOMAX [Concomitant]
     Indication: DYSURIA
     Route: 048
     Dates: start: 20090101
  21. BACLOFEN [Concomitant]
     Indication: MUSCLE SPASMS
     Route: 048
     Dates: start: 20080101
  22. METOPROLOL TARTRATE [Concomitant]
     Indication: HYPERTENSION
     Route: 048
     Dates: start: 20080101
  23. FLOMAX [Concomitant]
     Indication: PROSTATIC DISORDER
     Route: 048
     Dates: start: 20090101

REACTIONS (4)
  - WRONG TECHNIQUE IN DRUG USAGE PROCESS [None]
  - PULMONARY THROMBOSIS [None]
  - DRUG INEFFECTIVE [None]
  - PRODUCT QUALITY ISSUE [None]
